FAERS Safety Report 21151552 (Version 2)
Quarter: 2022Q3

REPORT INFORMATION
  Report Type: Report from Study
  Country: US (occurrence: US)
  Receive Date: 20220730
  Receipt Date: 20220920
  Transmission Date: 20221026
  Serious: Yes (Hospitalization)
  Sender: FDA-Public Use
  Company Number: US-Accord-270921

PATIENT
  Age: 36 Year
  Sex: Female
  Weight: 118.84 kg

DRUGS (17)
  1. CLOZAPINE [Suspect]
     Active Substance: CLOZAPINE
     Indication: Schizoaffective disorder depressive type
     Dosage: 100 MG EVERY AM, 300 MG AT BEDTIME
     Route: 048
  2. MIRABEGRON [Concomitant]
     Active Substance: MIRABEGRON
  3. ATROPINE SULFATE [Concomitant]
     Active Substance: ATROPINE SULFATE
     Dosage: STRENGTH: 1%
     Route: 060
  4. TRAZODONE [Concomitant]
     Active Substance: TRAZODONE HYDROCHLORIDE
  5. FLUPHENAZINE [Concomitant]
     Active Substance: FLUPHENAZINE
  6. ATIVAN [Concomitant]
     Active Substance: LORAZEPAM
     Dosage: 1 MG AT 4:30 PM
  7. NEURONTIN [Concomitant]
     Active Substance: GABAPENTIN
     Dosage: 1600 MG AT BEDTIME; 800?MG EACH MORNING
  8. PROLIXIN [Concomitant]
     Active Substance: FLUPHENAZINE HYDROCHLORIDE
     Dosage: 5 MG TWICE DAILY
  9. PSYLLIUM [Concomitant]
     Active Substance: PLANTAGO SEED
     Dosage: 1 PK DAILY
  10. MAGNESIUM CITRATE [Concomitant]
     Active Substance: MAGNESIUM CITRATE
     Dosage: 1 30 ML BOTTLE EVERY OTHER DAY AS NEEDED
  11. CHLORHEXIDINE [Concomitant]
     Active Substance: CHLORHEXIDINE
     Dosage: RINSE TWICE DAILY
  12. ERGOCALCIFEROL [Concomitant]
     Active Substance: ERGOCALCIFEROL
     Dosage: 50 MCG EVERY OTHER DAY
  13. LOPRESSOR [Concomitant]
     Active Substance: METOPROLOL TARTRATE
     Dosage: 25 MG TWICE DAILY
  14. LEVOTHYROXINE [Concomitant]
     Active Substance: LEVOTHYROXINE
     Dosage: 88 MG DAILY
  15. PROTONIX [Concomitant]
     Active Substance: PANTOPRAZOLE SODIUM
     Dosage: 20 MG DAILY
  16. COLACE [Concomitant]
     Active Substance: DOCUSATE SODIUM
     Dosage: 300 MG AT BEDTIME
  17. ATIVAN [Concomitant]
     Active Substance: LORAZEPAM
     Dosage: 1 MG EACH MORNING

REACTIONS (1)
  - Psychotic disorder [Recovered/Resolved]
